FAERS Safety Report 6147458-8 (Version None)
Quarter: 2009Q2

REPORT INFORMATION
  Report Type: 
  Country: None (occurrence: None)
  Receive Date: 20090408
  Receipt Date: 20090402
  Transmission Date: 20091009
  Serious: Yes (Hospitalization)
  Sender: FDA-Public Use
  Company Number: IT-BRISTOL-MYERS SQUIBB COMPANY-14557425

PATIENT
  Age: 39 Year
  Sex: Male

DRUGS (4)
  1. METFORMIN HCL [Suspect]
     Indication: ANOREXIA
     Route: 048
     Dates: start: 20090313, end: 20090316
  2. BUSPIRONE HCL [Suspect]
     Indication: ANOREXIA
     Route: 048
     Dates: start: 20090313, end: 20090316
  3. BUPROPION HCL [Suspect]
     Indication: ANOREXIA
     Route: 048
     Dates: start: 20090313, end: 20090316
  4. FLUOXETINE HCL [Suspect]
     Indication: ANOREXIA
     Route: 048
     Dates: start: 20090313, end: 20090316

REACTIONS (3)
  - ERYTHEMA [None]
  - HYPERTENSION [None]
  - LOSS OF CONSCIOUSNESS [None]
